FAERS Safety Report 5634093-0 (Version None)
Quarter: 2008Q1

REPORT INFORMATION
  Report Type: 
  Country: None (occurrence: None)
  Receive Date: 20080221
  Receipt Date: 20080215
  Transmission Date: 20080703
  Serious: Yes (Hospitalization)
  Sender: FDA-Public Use
  Company Number: US-GILEAD-2007-0013985

PATIENT
  Sex: Male
  Weight: 17.252 kg

DRUGS (7)
  1. TRUVADA [Suspect]
     Indication: HIV INFECTION
     Route: 048
     Dates: start: 20041129
  2. REYATAZ [Concomitant]
     Indication: HIV INFECTION
     Route: 065
  3. NORVIR [Concomitant]
     Indication: HIV INFECTION
     Route: 065
  4. DEPAKOTE [Concomitant]
     Indication: TRISOMY 21
     Route: 048
  5. SEROQUEL [Concomitant]
     Indication: ANXIETY
     Route: 048
  6. LEVOXINE [Concomitant]
     Indication: HYPOTHYROIDISM
     Route: 048
     Dates: start: 20051020
  7. ATIVAN [Concomitant]
     Indication: ANXIETY
     Route: 048

REACTIONS (4)
  - PROTEINURIA [None]
  - RENAL DISORDER [None]
  - THROMBOCYTOPENIA [None]
  - TRANSAMINASES INCREASED [None]
